FAERS Safety Report 6637543-6 (Version None)
Quarter: 2010Q1

REPORT INFORMATION
  Report Type: 
  Country: None (occurrence: None)
  Receive Date: 20100317
  Receipt Date: 20100306
  Transmission Date: 20100710
  Serious: Yes (Other)
  Sender: FDA-Public Use
  Company Number: US-JNJFOC-20100105618

PATIENT
  Age: 57 Year
  Sex: Female
  Weight: 76.2 kg

DRUGS (5)
  1. TYLENOL [Suspect]
     Route: 048
  2. TYLENOL [Suspect]
     Indication: ARTHRITIS
     Dosage: 2-3 TIMES A DAY
     Route: 048
  3. DICLOFENAC [Concomitant]
     Indication: ARTHRITIS
     Dosage: 4-5 YEARS
  4. OMEPRAZOLE [Concomitant]
     Dosage: 30 MINUTES BEFORE MEALS
  5. UNKNOWN MEDICATION [Concomitant]

REACTIONS (10)
  - ABDOMINAL PAIN UPPER [None]
  - DIARRHOEA [None]
  - DRUG INEFFECTIVE [None]
  - FATIGUE [None]
  - GASTROINTESTINAL PAIN [None]
  - GASTROINTESTINAL SOUNDS ABNORMAL [None]
  - HAEMATOCHEZIA [None]
  - NAUSEA [None]
  - PRODUCT QUALITY ISSUE [None]
  - WEIGHT DECREASED [None]
